FAERS Safety Report 9665361 (Version 1)
Quarter: 2013Q4

REPORT INFORMATION
  Report Type: Spontaneous
  Country: TW (occurrence: TW)
  Receive Date: 20131101
  Receipt Date: 20131101
  Transmission Date: 20140711
  Serious: Yes (Other)
  Sender: FDA-Public Use
  Company Number: TW-ROCHE-1291922

PATIENT
  Age: 82 Year
  Sex: Male

DRUGS (3)
  1. AVASTIN [Suspect]
     Indication: AGE-RELATED MACULAR DEGENERATION
     Dosage: INTRAVITREAL INJECTION OF 2.5 MG/0.1 ML
     Route: 050
  2. TRIAMCINOLONE [Suspect]
     Indication: AGE-RELATED MACULAR DEGENERATION
     Route: 050
  3. VERTEPORFIN [Suspect]
     Indication: AGE-RELATED MACULAR DEGENERATION
     Dosage: 6 MG PER SQUARE METER OF BODY SURFACE AREA, INTRAVENOUS INFUSION OF 30 ML FOR MORE THAN 10 MINUTES.
     Route: 042

REACTIONS (6)
  - Choroidal infarction [Recovering/Resolving]
  - Retinal pigment epithelial tear [Unknown]
  - Retinal haemorrhage [Unknown]
  - Visual impairment [Recovering/Resolving]
  - Macular scar [Recovering/Resolving]
  - Drug resistance [Unknown]
